FAERS Safety Report 9000572 (Version 1)
Quarter: 2013Q1

REPORT INFORMATION
  Report Type: Spontaneous
  Country: US (occurrence: US)
  Receive Date: 20130107
  Receipt Date: 20130107
  Transmission Date: 20140127
  Serious: No
  Sender: FDA-Public Use
  Company Number: US-PFIZER INC-2013002798

PATIENT
  Age: 65 Year
  Sex: Male
  Weight: 77.1 kg

DRUGS (3)
  1. NEURONTIN [Suspect]
     Indication: ORAL PAIN
     Dosage: 600 MG, 1X/DAY
     Dates: start: 201201, end: 20121127
  2. NEURONTIN [Suspect]
     Dosage: 600 MG, 2X/DAY
     Dates: start: 20121128, end: 2012
  3. NEURONTIN [Suspect]
     Dosage: 600 MG, 1X/DAY
     Dates: start: 2012

REACTIONS (11)
  - Amnesia [Unknown]
  - Oral pain [Unknown]
  - Lip pain [Unknown]
  - Glossodynia [Unknown]
  - Anxiety [Unknown]
  - Insomnia [Unknown]
  - Irritability [Unknown]
  - Logorrhoea [Unknown]
  - Myalgia [Unknown]
  - Malaise [Unknown]
  - Off label use [Not Recovered/Not Resolved]
